FAERS Safety Report 11929851 (Version 1)
Quarter: 2016Q1

REPORT INFORMATION
  Report Type: Spontaneous
  Country: PE (occurrence: PE)
  Receive Date: 20160120
  Receipt Date: 20160120
  Transmission Date: 20160526
  Serious: Yes (Hospitalization)
  Sender: FDA-Public Use
  Company Number: PE-009507513-1601PER005815

PATIENT
  Age: 6 Year
  Sex: Male

DRUGS (2)
  1. SINGULAIR [Suspect]
     Active Substance: MONTELUKAST SODIUM
     Dosage: 4 MG, DAILY
     Route: 048
     Dates: start: 20150523, end: 20151115
  2. NASONEX [Suspect]
     Active Substance: MOMETASONE FUROATE
     Dosage: 2 APPLICATIONS/ DAY
     Route: 045
     Dates: start: 20150523

REACTIONS (3)
  - Haemoptysis [Unknown]
  - Influenza [Unknown]
  - Pneumonia [Unknown]

NARRATIVE: CASE EVENT DATE: 2015
